FAERS Safety Report 7673342-4 (Version None)
Quarter: 2011Q3

REPORT INFORMATION
  Report Type: 
  Country: None (occurrence: None)
  Receive Date: 20110810
  Receipt Date: 20110729
  Transmission Date: 20111222
  Serious: Yes (Death)
  Sender: FDA-Public Use
  Company Number: DE-CELGENEUS-062-21880-11051442

PATIENT
  Age: 41 Year
  Sex: Female

DRUGS (3)
  1. PALLADONE [Concomitant]
     Indication: PAIN
     Route: 065
  2. ENOXAPARIN SODIUM [Concomitant]
     Indication: THROMBOSIS PROPHYLAXIS
     Route: 065
  3. REVLIMID [Suspect]
     Indication: LYMPHOMA
     Dosage: 15 MILLIGRAM
     Route: 048
     Dates: start: 20110401

REACTIONS (2)
  - LYMPHOMA [None]
  - SEPSIS [None]
